FAERS Safety Report 26069010 (Version 1)
Quarter: 2025Q4

REPORT INFORMATION
  Report Type: Spontaneous
  Country: CN (occurrence: CN)
  Receive Date: 20251120
  Receipt Date: 20251120
  Transmission Date: 20260117
  Serious: Yes (Hospitalization, Other)
  Sender: BAXTER
  Company Number: None

PATIENT
  Age: 53 Year
  Sex: Male
  Weight: 68.9 kg

DRUGS (7)
  1. CYCLOPHOSPHAMIDE [Suspect]
     Active Substance: CYCLOPHOSPHAMIDE
     Indication: Neoplasm malignant
     Dosage: 2 G, QD
     Route: 041
     Dates: start: 20251029, end: 20251029
  2. SODIUM CHLORIDE [Suspect]
     Active Substance: SODIUM CHLORIDE
     Dosage: 100 ML, QD (ONCE IVGTT) (VINDESINE SULFATE+ SODIUM CHLORIDE)
     Route: 041
     Dates: start: 20251029
  3. SODIUM CHLORIDE [Suspect]
     Active Substance: SODIUM CHLORIDE
     Dosage: 500 ML, QD (ONCE IVGTT) (CYCYLOPHOSPHAMIDE+ SODIUM CHLORIDE)
     Route: 041
     Dates: start: 20251029
  4. DEXTROSE [Suspect]
     Active Substance: DEXTROSE MONOHYDRATE
     Dosage: 500 ML, QD IVGTT (LIPOSOME DOXORUBICIN+GLUCOSE)
     Route: 041
     Dates: start: 20251029
  5. DOXORUBICIN HYDROCHLORIDE [Suspect]
     Active Substance: DOXORUBICIN HYDROCHLORIDE
     Indication: Neoplasm malignant
     Dosage: 40 MG, QD (SELF-PREPARED)
     Route: 041
     Dates: start: 20251029, end: 20251029
  6. DOXORUBICIN HYDROCHLORIDE [Suspect]
     Active Substance: DOXORUBICIN HYDROCHLORIDE
     Dosage: 60 MG, QD (SELF-PREPARED)
     Route: 041
     Dates: start: 20251030, end: 20251030
  7. VINDESINE SULFATE [Suspect]
     Active Substance: VINDESINE SULFATE
     Indication: Neoplasm malignant
     Dosage: 4 MG, QD
     Route: 041
     Dates: start: 20251029, end: 20251029

REACTIONS (1)
  - Myelosuppression [Recovering/Resolving]

NARRATIVE: CASE EVENT DATE: 20251110
